FAERS Safety Report 5758414-3 (Version None)
Quarter: 2008Q2

REPORT INFORMATION
  Report Type: 
  Country: None (occurrence: None)
  Receive Date: 20080603
  Receipt Date: 20080603
  Transmission Date: 20081010
  Serious: Yes (Hospitalization)
  Sender: FDA-Public Use
  Company Number: None

PATIENT
  Age: 61 Year
  Sex: Female
  Weight: 72.1219 kg

DRUGS (3)
  1. ULTRAM [Suspect]
     Indication: BACK PAIN
     Dosage: 50MG         3-4 TIMES A DAY      PO
     Route: 048
     Dates: start: 20080514, end: 20080526
  2. ELAVIL [Suspect]
     Indication: ANXIETY
     Dosage: 10MG      1 NIGHTLY         PO
     Route: 048
     Dates: start: 20080520, end: 20080525
  3. ELAVIL [Suspect]
     Indication: MIGRAINE PROPHYLAXIS
     Dosage: 10MG      1 NIGHTLY         PO
     Route: 048
     Dates: start: 20080520, end: 20080525

REACTIONS (7)
  - ABDOMINAL PAIN LOWER [None]
  - ANXIETY [None]
  - DRUG INTERACTION [None]
  - INSOMNIA [None]
  - NAUSEA [None]
  - RESTLESSNESS [None]
  - SEROTONIN SYNDROME [None]
